FAERS Safety Report 7527754-X (Version None)
Quarter: 2011Q2

REPORT INFORMATION
  Report Type: 
  Country: None (occurrence: None)
  Receive Date: 20110607
  Receipt Date: 20110531
  Transmission Date: 20111010
  Serious: Yes (Other)
  Sender: FDA-Public Use
  Company Number: TW-GENZYME-THYM-1002501

PATIENT
  Age: 16 Year
  Sex: Male
  Weight: 80 kg

DRUGS (9)
  1. NEUPOGEN [Concomitant]
     Dosage: 10 MCG/KG, QD
     Route: 065
  2. CYCLOPHOSPHAMIDE [Concomitant]
     Indication: BONE MARROW CONDITIONING REGIMEN
     Dosage: 120 MG/KG, UNK
     Route: 065
  3. METHYLPREDNISOLONE [Concomitant]
     Route: 065
  4. CYCLOSPORINE [Concomitant]
     Indication: PROPHYLAXIS AGAINST GRAFT VERSUS HOST DISEASE
     Route: 065
  5. FLUCONAZOLE [Concomitant]
     Route: 065
  6. THYMOGLOBULIN [Suspect]
     Indication: BONE MARROW CONDITIONING REGIMEN
     Dosage: 3.0 MG/KG, QD
     Route: 042
  7. FLUDARA [Suspect]
     Indication: BONE MARROW CONDITIONING REGIMEN
     Dosage: 180 MG/M2, UNK
     Route: 065
  8. COTRIM [Concomitant]
     Route: 065
  9. IMMUNE GLOBULIN NOS [Concomitant]
     Route: 042

REACTIONS (4)
  - ACUTE GRAFT VERSUS HOST DISEASE IN SKIN [None]
  - SEPSIS [None]
  - ACUTE GRAFT VERSUS HOST DISEASE IN INTESTINE [None]
  - CHRONIC GRAFT VERSUS HOST DISEASE [None]
